FAERS Safety Report 9153734 (Version 2)
Quarter: 2013Q2

REPORT INFORMATION
  Report Type: Spontaneous
  Country: NL (occurrence: NL)
  Receive Date: 20130311
  Receipt Date: 20130617
  Transmission Date: 20140414
  Serious: Yes (Death, Life-Threatening)
  Sender: FDA-Public Use
  Company Number: NL-JNJFOC-20130301619

PATIENT
  Age: 69 Year
  Sex: Female
  Weight: 102 kg

DRUGS (15)
  1. XARELTO [Suspect]
     Indication: CEREBROVASCULAR ACCIDENT PROPHYLAXIS
     Route: 048
     Dates: start: 20121019, end: 20130207
  2. XARELTO [Suspect]
     Indication: ATRIAL FIBRILLATION
     Route: 048
     Dates: start: 20121019, end: 20130207
  3. LACTULOSE [Concomitant]
     Route: 065
     Dates: start: 20071221
  4. PARACETAMOL [Concomitant]
     Dosage: 1000MG 4DD2
     Route: 065
  5. COLECALCIFEROL [Concomitant]
     Route: 065
  6. LIPITOR [Concomitant]
     Route: 065
     Dates: start: 20090209
  7. SPIRIVA HANDIHALER [Concomitant]
     Route: 065
     Dates: start: 20080602
  8. LEVOTHYROXINE SODIUM [Concomitant]
     Dosage: 200
     Route: 065
     Dates: start: 20121022
  9. LORAZEPAM [Concomitant]
     Route: 065
     Dates: start: 20120824
  10. CAMCOLIT [Concomitant]
     Route: 065
     Dates: start: 20110509
  11. PANTOPRAZOLE SODIUM [Concomitant]
     Route: 065
     Dates: start: 20100225
  12. MELATONIN [Concomitant]
     Route: 065
  13. NIFEDIPINE [Concomitant]
     Route: 065
     Dates: start: 20081014
  14. CISORDINOL [Concomitant]
     Route: 065
     Dates: start: 20090209
  15. METFORMINE [Concomitant]
     Route: 065
     Dates: start: 20100603

REACTIONS (3)
  - Hyperkalaemia [Fatal]
  - General physical health deterioration [Fatal]
  - Cognitive disorder [Fatal]
